FAERS Safety Report 21439583 (Version 13)
Quarter: 2024Q2

REPORT INFORMATION
  Report Type: Spontaneous
  Country: US (occurrence: US)
  Receive Date: 20221011
  Receipt Date: 20240403
  Transmission Date: 20240715
  Serious: No
  Sender: FDA-Public Use
  Company Number: US-DSJP-DSU-2022-135997

PATIENT
  Age: 71 Year
  Sex: Female

DRUGS (6)
  1. ENHERTU [Suspect]
     Active Substance: FAM-TRASTUZUMAB DERUXTECAN-NXKI
     Indication: Breast cancer metastatic
     Dosage: UNK
     Route: 042
     Dates: start: 202209
  2. ENHERTU [Suspect]
     Active Substance: FAM-TRASTUZUMAB DERUXTECAN-NXKI
     Dosage: UNK
     Route: 042
  3. ENHERTU [Suspect]
     Active Substance: FAM-TRASTUZUMAB DERUXTECAN-NXKI
     Dosage: UNK
     Route: 042
  4. ALOXI [Concomitant]
     Active Substance: PALONOSETRON HYDROCHLORIDE
     Indication: Nausea
     Dosage: UNK
     Route: 065
  5. ALOXI [Concomitant]
     Active Substance: PALONOSETRON HYDROCHLORIDE
     Indication: Premedication
  6. DEXAMETHASONE [Concomitant]
     Active Substance: DEXAMETHASONE
     Indication: Premedication
     Dosage: UNK
     Route: 065

REACTIONS (11)
  - Dry skin [Unknown]
  - Adverse drug reaction [Unknown]
  - Insomnia [Unknown]
  - Food aversion [Unknown]
  - Alopecia [Unknown]
  - Cough [Not Recovered/Not Resolved]
  - Constipation [Unknown]
  - Fatigue [Unknown]
  - Fatigue [Unknown]
  - Metastases to bone [Recovering/Resolving]
  - Inappropriate schedule of product administration [Unknown]
